FAERS Safety Report 10574623 (Version 1)
Quarter: 2014Q4

REPORT INFORMATION
  Report Type: Spontaneous
  Country: TH (occurrence: TH)
  Receive Date: 20141110
  Receipt Date: 20141110
  Transmission Date: 20150529
  Serious: Yes (Other)
  Sender: FDA-Public Use
  Company Number: TH-WATSON-2014-23758

PATIENT
  Age: 27 Year
  Sex: Female

DRUGS (2)
  1. ERYTHROMYCIN (UNKNOWN) [Interacting]
     Active Substance: ERYTHROMYCIN
     Indication: PRODUCT USED FOR UNKNOWN INDICATION
     Dosage: UNK
     Route: 065
  2. CAFFEINE-ERGOTAMINE (UNKNOWN) [Suspect]
     Active Substance: CAFFEINE\ERGOTAMINE TARTRATE
     Indication: PRODUCT USED FOR UNKNOWN INDICATION
     Dosage: 2 TABLETS OF ERGOTAMINE 1 MG/ CAFFEINE 100 MG
     Route: 048

REACTIONS (2)
  - Drug interaction [Recovered/Resolved]
  - Ergot poisoning [Recovered/Resolved]
